FAERS Safety Report 23319648 (Version 1)
Quarter: 2023Q4

REPORT INFORMATION
  Report Type: Spontaneous
  Country: US (occurrence: US)
  Receive Date: 20231220
  Receipt Date: 20231220
  Transmission Date: 20240110
  Serious: No
  Sender: FDA-Public Use
  Company Number: US-AJANTA-2023AJA00166

PATIENT
  Sex: Female
  Weight: 225 kg

DRUGS (7)
  1. DULOXETINE [Suspect]
     Active Substance: DULOXETINE
     Indication: Anxiety
     Route: 048
     Dates: start: 20230612, end: 202306
  2. DULOXETINE [Suspect]
     Active Substance: DULOXETINE
     Indication: Depression
  3. LISINOPRIL [Concomitant]
     Active Substance: LISINOPRIL
     Indication: Hypertension
  4. METOPROLOL [Concomitant]
     Active Substance: METOPROLOL
     Indication: Hypertension
  5. Compounded HRT cream Estrodial 2/Progesterone 200 mg [Concomitant]
     Indication: Premature menopause
     Route: 062
  6. FENOFIBRATE [Concomitant]
     Active Substance: FENOFIBRATE
  7. ROSUVASTATIN [Concomitant]
     Active Substance: ROSUVASTATIN

REACTIONS (2)
  - Product substitution issue [Unknown]
  - Somnolence [Recovered/Resolved]

NARRATIVE: CASE EVENT DATE: 20230612
